FAERS Safety Report 7888070-X (Version None)
Quarter: 2011Q4

REPORT INFORMATION
  Report Type: 
  Country: None (occurrence: None)
  Receive Date: 20111102
  Receipt Date: 20111102
  Transmission Date: 20120403
  Serious: Yes (Hospitalization)
  Sender: FDA-Public Use
  Company Number: None

PATIENT
  Age: 80 Year
  Sex: Male
  Weight: 76.3 kg

DRUGS (2)
  1. SULFAMETHOXAZOLE AND TRIMETHOPRIM [Suspect]
     Dosage: 800MG/160 BID PO
     Route: 048
     Dates: start: 20110808, end: 20110818
  2. AZATHIOPRINE [Suspect]
     Dosage: 50 MG EVERY DAY PO
     Route: 048
     Dates: start: 20110303, end: 20110818

REACTIONS (7)
  - THROMBOCYTOPENIA [None]
  - DEHYDRATION [None]
  - RASH MACULO-PAPULAR [None]
  - ASTHENIA [None]
  - BLOOD UREA INCREASED [None]
  - FATIGUE [None]
  - BLOOD CREATININE INCREASED [None]
